FAERS Safety Report 5220326-1 (Version None)
Quarter: 2007Q1

REPORT INFORMATION
  Report Type: 
  Country: None (occurrence: None)
  Receive Date: 20061201
  Receipt Date: 20060711
  Transmission Date: 20070707
  Serious: No
  Sender: FDA-Public Use
  Company Number: 2006PV017381

PATIENT
  Age: 66 Year
  Sex: Male
  Weight: 125.1928 kg

DRUGS (4)
  1. BYETTA [Suspect]
     Indication: DIABETES MELLITUS NON-INSULIN-DEPENDENT
     Dosage: 5 MCG;BID;SC
     Route: 058
     Dates: start: 20060711
  2. LANTUS [Concomitant]
  3. NOVOLOG [Concomitant]
  4. LEVAQUIN [Concomitant]

REACTIONS (2)
  - BACK PAIN [None]
  - BLOOD GLUCOSE INCREASED [None]
